FAERS Safety Report 7037863-X (Version None)
Quarter: 2010Q4

REPORT INFORMATION
  Report Type: 
  Country: None (occurrence: None)
  Receive Date: 20101011
  Receipt Date: 20101006
  Transmission Date: 20110411
  Serious: Yes (Other)
  Sender: FDA-Public Use
  Company Number: CHPA2010DE15853

PATIENT
  Age: 1 Year
  Sex: Male

DRUGS (1)
  1. SCOPOLAMINE [Suspect]
     Indication: SALIVARY HYPERSECRETION
     Dosage: UNK, UNK
     Route: 062

REACTIONS (5)
  - HALLUCINATION [None]
  - OFF LABEL USE [None]
  - OVERDOSE [None]
  - PERSONALITY CHANGE [None]
  - WRONG TECHNIQUE IN DRUG USAGE PROCESS [None]
